FAERS Safety Report 4965305-4 (Version None)
Quarter: 2006Q2

REPORT INFORMATION
  Report Type: 
  Country: None (occurrence: None)
  Receive Date: 20060406
  Receipt Date: 20051031
  Transmission Date: 20061013
  Serious: Yes (Hospitalization, Disabling, Other)
  Sender: FDA-Public Use
  Company Number: US-MERCK-0511USA00347

PATIENT
  Age: 53 Year
  Sex: Female
  Weight: 82 kg

DRUGS (6)
  1. VIOXX [Suspect]
     Indication: PAIN
     Route: 048
     Dates: start: 20000101, end: 20010101
  2. ZOCOR [Concomitant]
     Route: 065
     Dates: start: 20000101
  3. PREMARIN [Concomitant]
     Route: 065
     Dates: start: 19940101, end: 20050101
  4. DIGOXIN [Concomitant]
     Route: 065
     Dates: start: 20000101
  5. ASPIRIN [Concomitant]
     Route: 065
     Dates: start: 20000101
  6. LEVOTHYROXINE SODIUM [Concomitant]
     Route: 065
     Dates: start: 19870101

REACTIONS (8)
  - CAROTID ARTERY STENOSIS [None]
  - CEREBROVASCULAR ACCIDENT [None]
  - CHEST PAIN [None]
  - CHRONIC OBSTRUCTIVE PULMONARY DISEASE [None]
  - DIABETES MELLITUS [None]
  - MYOCARDIAL INFARCTION [None]
  - OEDEMA [None]
  - SLEEP APNOEA SYNDROME [None]
